FAERS Safety Report 6944525-3 (Version None)
Quarter: 2010Q3

REPORT INFORMATION
  Report Type: 
  Country: None (occurrence: None)
  Receive Date: 20100827
  Receipt Date: 20100818
  Transmission Date: 20110219
  Serious: Yes (Other)
  Sender: FDA-Public Use
  Company Number: BR-PFIZER INC-2010104113

PATIENT
  Age: 62 Year
  Sex: Female

DRUGS (4)
  1. CHAMPIX [Suspect]
     Indication: SMOKING CESSATION THERAPY
     Dosage: UNK
     Route: 048
     Dates: start: 20100701
  2. CHAMPIX [Suspect]
     Dosage: 1 MG, UNK
     Route: 048
  3. PHENYTOIN [Concomitant]
     Indication: CONVULSION
     Dosage: 1 TABLET, 2X/DAY
     Dates: start: 20050101
  4. PHENYTOIN [Concomitant]
     Indication: ISCHAEMIA

REACTIONS (4)
  - APATHY [None]
  - DAYDREAMING [None]
  - DRUG DISPENSING ERROR [None]
  - MEMORY IMPAIRMENT [None]
